FAERS Safety Report 4513483-3 (Version None)
Quarter: 2004Q4

REPORT INFORMATION
  Report Type: 
  Country: None (occurrence: None)
  Receive Date: 20041124
  Receipt Date: 20040910
  Transmission Date: 20050328
  Serious: Yes (Other)
  Sender: FDA-Public Use
  Company Number: NLWYE054621SEP04

PATIENT
  Age: 44 Year
  Sex: Male

DRUGS (4)
  1. EFFEXOR XR [Suspect]
     Indication: DEPRESSION
     Dosage: 75 MG 1X PER 1 DAY
     Route: 048
     Dates: start: 20040910, end: 20040910
  2. NOCTAMID (LORMETAZEPAM) [Concomitant]
  3. METFORMIN HCL [Concomitant]
  4. LOSARTAN (LOSARTAN) [Concomitant]

REACTIONS (5)
  - AMNESIA [None]
  - DISTURBANCE IN ATTENTION [None]
  - EYE ROLLING [None]
  - THINKING ABNORMAL [None]
  - WALKING DISABILITY [None]
